FAERS Safety Report 7428163-4 (Version None)
Quarter: 2011Q2

REPORT INFORMATION
  Report Type: 
  Country: None (occurrence: None)
  Receive Date: 20110421
  Receipt Date: 20110411
  Transmission Date: 20111010
  Serious: No
  Sender: FDA-Public Use
  Company Number: US-BIOGENIDEC-2011BI013927

PATIENT
  Sex: Female

DRUGS (3)
  1. TYSABRI [Suspect]
     Indication: MULTIPLE SCLEROSIS
     Route: 042
     Dates: start: 20091112, end: 20110304
  2. TYSABRI [Suspect]
     Route: 042
     Dates: start: 20080319, end: 20090416
  3. TYSABRI [Suspect]
     Route: 042
     Dates: start: 20061215, end: 20070518

REACTIONS (5)
  - FATIGUE [None]
  - DRUG SPECIFIC ANTIBODY PRESENT [None]
  - OEDEMA PERIPHERAL [None]
  - URTICARIA [None]
  - EOSINOPHIL COUNT INCREASED [None]
